APPROVED DRUG PRODUCT: HYDROCORTISONE SODIUM SUCCINATE
Active Ingredient: HYDROCORTISONE SODIUM SUCCINATE
Strength: EQ 250MG BASE/VIAL
Dosage Form/Route: INJECTABLE;INJECTION
Application: A087567 | Product #001
Applicant: BAXTER HEALTHCARE CORP ANESTHESIA AND CRITICAL CARE
Approved: Approved Prior to Jan 1, 1982 | RLD: No | RS: No | Type: DISCN